FAERS Safety Report 18500193 (Version 2)
Quarter: 2020Q4

REPORT INFORMATION
  Report Type: Report from Study
  Country: CN (occurrence: CN)
  Receive Date: 20201113
  Receipt Date: 20201120
  Transmission Date: 20210114
  Serious: Yes (Death)
  Sender: FDA-Public Use
  Company Number: CN-KARYOPHARM THERAPEUTICS, INC.-2020KPT000359

PATIENT
  Age: 61 Year
  Sex: Male

DRUGS (7)
  1. SELINEXOR [Suspect]
     Active Substance: SELINEXOR
     Indication: PLASMA CELL MYELOMA
     Dosage: 80 MG, 2X/WEEK
     Route: 048
     Dates: start: 20191211, end: 20191218
  2. SELINEXOR [Suspect]
     Active Substance: SELINEXOR
     Dosage: 100 MG, WEEKLY
     Route: 048
     Dates: start: 20191228, end: 20191231
  3. SELINEXOR [Suspect]
     Active Substance: SELINEXOR
     Dosage: 80 MG, 2X/WEEK
     Route: 048
     Dates: start: 20191224
  4. VORICONAZOLE ACCORD [Concomitant]
     Indication: PNEUMONIA
     Dosage: 200 MG, BID
     Route: 048
  5. DEXAMETHASONE. [Suspect]
     Active Substance: DEXAMETHASONE
     Indication: PLASMA CELL MYELOMA
     Dosage: 20 MG, 2X/WEEK
     Route: 048
     Dates: start: 20191211, end: 20191218
  6. MOXIFLOXACIN. [Concomitant]
     Active Substance: MOXIFLOXACIN
     Indication: PNEUMONIA
     Dosage: 0.4 G, QD
     Route: 048
  7. DEXAMETHASONE. [Suspect]
     Active Substance: DEXAMETHASONE
     Dosage: 20 MG, 2X/WEEK
     Route: 048
     Dates: start: 20191224

REACTIONS (1)
  - Haemorrhage intracranial [Fatal]

NARRATIVE: CASE EVENT DATE: 20200106
